FAERS Safety Report 9236721 (Version 4)
Quarter: 2013Q3

REPORT INFORMATION
  Report Type: Spontaneous
  Country: US (occurrence: None)
  Receive Date: 20130415
  Receipt Date: 20130929
  Transmission Date: 20140515
  Serious: Yes (Other)
  Sender: FDA-Public Use
  Company Number: JPI-P-029615

PATIENT
  Age: 16 Year
  Sex: Female
  Weight: 64.41 kg

DRUGS (6)
  1. XYREM [Suspect]
     Indication: CATAPLEXY
     Dosage: 4.5 GM (2.25 GM,2 IN 1 D)
     Route: 048
     Dates: start: 20121030
  2. MODAFINIL [Suspect]
     Indication: NARCOLEPSY
     Dates: start: 20130207
  3. FERROUS GLUCONATE [Concomitant]
  4. MONTELUKAST SODIUM [Concomitant]
  5. IBUPROFEN [Concomitant]
  6. MULTIVITAMIN [Concomitant]

REACTIONS (9)
  - Weight decreased [None]
  - Feeling abnormal [None]
  - Cataplexy [None]
  - Hunger [None]
  - Depression [None]
  - Pain [None]
  - Decreased appetite [None]
  - Nausea [None]
  - Gastrointestinal tube insertion [None]
